FAERS Safety Report 9282071 (Version 2)
Quarter: 2013Q4

REPORT INFORMATION
  Report Type: Spontaneous
  Country: GB (occurrence: GB)
  Receive Date: 20130510
  Receipt Date: 20131023
  Transmission Date: 20140711
  Serious: Yes (Disabling)
  Sender: FDA-Public Use
  Company Number: GB-RANBAXY-2013R1-68438

PATIENT
  Age: 55 Year
  Sex: Male
  Weight: 74.6 kg

DRUGS (6)
  1. GABAPENTIN [Suspect]
     Indication: BACK PAIN
     Dosage: 400 MG, TID
     Route: 065
     Dates: start: 20121205, end: 20130215
  2. AMITRIPTYLINE HYDROCHLORIDE [Concomitant]
     Indication: PRODUCT USED FOR UNKNOWN INDICATION
     Dosage: UNK
     Route: 065
     Dates: start: 20121205
  3. BACLOFEN [Concomitant]
     Indication: PRODUCT USED FOR UNKNOWN INDICATION
     Dosage: UNK
     Route: 065
     Dates: start: 20121205
  4. MORPHINE SULPHATE [Concomitant]
     Indication: PRODUCT USED FOR UNKNOWN INDICATION
     Dosage: UNK
     Route: 065
     Dates: start: 20130415, end: 20130416
  5. MORPHINE SULPHATE [Concomitant]
     Indication: PRODUCT USED FOR UNKNOWN INDICATION
     Dosage: UNK
     Route: 065
     Dates: start: 20130225, end: 20130227
  6. ZOMORPH [Concomitant]
     Indication: PRODUCT USED FOR UNKNOWN INDICATION
     Dosage: UNK
     Route: 065
     Dates: start: 20121231

REACTIONS (3)
  - Athetosis [Recovered/Resolved]
  - Gynaecomastia [Recovered/Resolved]
  - Tremor [Recovered/Resolved]
